FAERS Safety Report 4771342-5 (Version None)
Quarter: 2005Q3

REPORT INFORMATION
  Report Type: 
  Country: None (occurrence: None)
  Receive Date: 20050915
  Receipt Date: 20050527
  Transmission Date: 20060218
  Serious: Yes (Other)
  Sender: FDA-Public Use
  Company Number: US-MERCK-0506USA00399

PATIENT
  Age: 71 Year
  Sex: Female
  Weight: 59 kg

DRUGS (6)
  1. VIOXX [Suspect]
     Indication: ARTHRITIS
     Route: 048
     Dates: start: 20000301, end: 20040930
  2. PLAQUENIL [Concomitant]
     Route: 065
  3. GLUCOSAMINE SULFATE [Concomitant]
     Route: 065
  4. CLARITIN [Concomitant]
     Route: 065
  5. EVISTA [Concomitant]
     Route: 065
  6. DARVOCET-N 100 [Concomitant]
     Route: 065
     Dates: start: 19920101

REACTIONS (13)
  - CATARACT [None]
  - CEREBROVASCULAR ACCIDENT [None]
  - ENDOMETRIAL CANCER [None]
  - EYE INJURY [None]
  - FACIAL BONES FRACTURE [None]
  - FALL [None]
  - HYPERTENSION [None]
  - LOW DENSITY LIPOPROTEIN INCREASED [None]
  - OVARIAN CANCER [None]
  - RASH [None]
  - RHINITIS ALLERGIC [None]
  - ROAD TRAFFIC ACCIDENT [None]
  - SKIN LACERATION [None]
